FAERS Safety Report 5429895-X (Version None)
Quarter: 2007Q3

REPORT INFORMATION
  Report Type: 
  Country: None (occurrence: None)
  Receive Date: 20070827
  Receipt Date: 20070817
  Transmission Date: 20080115
  Serious: Yes (Life-Threatening, Hospitalization)
  Sender: FDA-Public Use
  Company Number: 2007SP016779

PATIENT
  Age: 8 Year
  Sex: Male
  Weight: 24.3 kg

DRUGS (7)
  1. DESLORATADINE [Suspect]
     Dosage: 2.5 MG;QD;PO
     Route: 048
     Dates: start: 20070621, end: 20070623
  2. CEFPODOXIME PROXETIL [Suspect]
     Indication: EAR PAIN
     Dosage: 100 MG; BID; PO
     Route: 048
     Dates: start: 20070621, end: 20070623
  3. PREDNISOLONE [Suspect]
     Indication: COUGH
     Dosage: 20 MG; QD; PO
     Route: 048
     Dates: start: 20070621, end: 20070623
  4. COQUELUSEDAL (COCUELUSEDAL) [Suspect]
     Indication: COUGH
     Dosage: ;RTL
     Route: 054
     Dates: start: 20070621, end: 20070623
  5. RHINOFLUMUCIL (RHINOFLUIMUCIL) [Suspect]
     Indication: COUGH
     Dosage: 1 DF; TID; NAS
     Route: 045
     Dates: start: 20070621, end: 20070623
  6. HEXASPRAY (BICLOTYMOL) [Suspect]
     Indication: COUGH
     Dosage: 2 DF; TID; PO
     Route: 048
     Dates: start: 20070621, end: 20070623
  7. TOPLEXIL [Concomitant]

REACTIONS (1)
  - STEVENS-JOHNSON SYNDROME [None]
